FAERS Safety Report 6809867-0 (Version None)
Quarter: 2010Q2

REPORT INFORMATION
  Report Type: 
  Country: None (occurrence: None)
  Receive Date: 20100630
  Receipt Date: 20100624
  Transmission Date: 20101027
  Serious: No
  Sender: FDA-Public Use
  Company Number: US-B.I. PHARMACEUTICALS,INC./RIDGEFIELD-2010-BP-07387BP

PATIENT
  Age: 2 Year
  Sex: Female

DRUGS (1)
  1. SPIRIVA [Suspect]
     Route: 061

REACTIONS (1)
  - ACCIDENTAL EXPOSURE [None]
